FAERS Safety Report 19998197 (Version 2)
Quarter: 2021Q4

REPORT INFORMATION
  Report Type: Spontaneous
  Country: JP (occurrence: JP)
  Receive Date: 20211026
  Receipt Date: 20211109
  Transmission Date: 20220303
  Serious: Yes (Hospitalization)
  Sender: FDA-Public Use
  Company Number: JP-DSJP-DSJ-2021-134587

PATIENT
  Age: 90 Year
  Sex: Female
  Weight: 43 kg

DRUGS (14)
  1. EDOXABAN TOSYLATE [Suspect]
     Active Substance: EDOXABAN TOSYLATE
     Indication: Deep vein thrombosis
     Dosage: 30 MG, QD, AFTER BREAKFAST
     Route: 048
  2. ETIZOLAM [Suspect]
     Active Substance: ETIZOLAM
     Dosage: 0.5 MG, QD, BEFORE BEDTIME
     Route: 048
  3. PRAVASTATIN SODIUM [Suspect]
     Active Substance: PRAVASTATIN SODIUM
     Indication: Dyslipidaemia
     Dosage: 10 MG, QD, AFTER BREAKFAST
     Route: 048
  4. RANITIDINE [Suspect]
     Active Substance: RANITIDINE
     Dosage: 75 MG, BID, AFTER BREAKFAST AND DINNER
     Route: 048
  5. SENNOSIDES A AND B [Suspect]
     Active Substance: SENNOSIDES A AND B
     Dosage: 60 MG, BID, AFTER BREAKFAST AND DINNER
     Route: 048
  6. DOMPERIDONE [Suspect]
     Active Substance: DOMPERIDONE
     Dosage: 10 MG, TID, AFTER BREAKFAST AND LUNCH AND DINNER
     Route: 048
  7. SUCRALFATE [Suspect]
     Active Substance: SUCRALFATE
     Dosage: 1 G, TID, AFTER BREAKFAST AND LUNCH AND DINNER
     Route: 048
  8. AMBROXOL HYDROCHLORIDE [Suspect]
     Active Substance: AMBROXOL HYDROCHLORIDE
     Dosage: 15 MG, TID, AFTER BREAKFAST AND LUNCH AND DINNER
     Route: 048
  9. FLAVOXATE HYDROCHLORIDE [Suspect]
     Active Substance: FLAVOXATE HYDROCHLORIDE
     Dosage: 200 MG, TID, AFTER BREAKFAST AND LUNCH AND DINNER
     Route: 048
  10. BROTIZOLAM [Suspect]
     Active Substance: BROTIZOLAM
     Dosage: 0.25 MG, QD, BEFORE BEDTIME
     Route: 048
  11. CEFCAPENE PIVOXIL HYDROCHLORIDE HYDRATE [Suspect]
     Active Substance: CEFCAPENE PIVOXIL HYDROCHLORIDE HYDRATE
     Dosage: 100 MG, TID, AFTER BREAKFAST AND LUNCH AND DINNER
     Route: 048
  12. TIPEPIDINE HIBENZATE [Suspect]
     Active Substance: TIPEPIDINE HIBENZATE
     Dosage: 20 MG, TID, AFTER BREAKFAST AND LUNCH AND DINNER
     Route: 048
  13. CLOSTRIDIUM BUTYRICUM SPORES STRAIN M-55 [Suspect]
     Active Substance: CLOSTRIDIUM BUTYRICUM SPORES STRAIN M-55
     Dosage: 1 DF, TID, AFTER BREAKFAST AND LUNCH AND DINNER
     Route: 048
  14. TULOBUTEROL [Concomitant]
     Active Substance: TULOBUTEROL
     Dosage: 2MG/DAY
     Route: 065

REACTIONS (5)
  - Fall [Unknown]
  - Spinal compression fracture [Unknown]
  - Pyrexia [Recovering/Resolving]
  - Inflammation [Recovering/Resolving]
  - Decreased appetite [Recovered/Resolved]
